FAERS Safety Report 9152519 (Version 2)
Quarter: 2013Q1

REPORT INFORMATION
  Report Type: Spontaneous
  Country: FR (occurrence: FR)
  Receive Date: 20130308
  Receipt Date: 20130320
  Transmission Date: 20140127
  Serious: Yes (Disabling)
  Sender: FDA-Public Use
  Company Number: FR-GILEAD-2013-0071208

PATIENT
  Sex: Female

DRUGS (4)
  1. EVIPLERA [Suspect]
     Indication: HIV INFECTION
     Dosage: 1 DF, QD
     Route: 048
     Dates: start: 20121115
  2. ATRIPLA [Suspect]
     Indication: HIV INFECTION
     Dosage: 1 DF, QD
     Route: 048
     Dates: start: 20120421, end: 20121115
  3. ZELITREX [Concomitant]
  4. MAXALT                             /01406501/ [Concomitant]

REACTIONS (1)
  - Periarthritis [Not Recovered/Not Resolved]
